FAERS Safety Report 11233213 (Version 1)
Quarter: 2015Q3

REPORT INFORMATION
  Report Type: Spontaneous
  Country: FR (occurrence: FR)
  Receive Date: 20150701
  Receipt Date: 20150701
  Transmission Date: 20151125
  Serious: Yes (Hospitalization, Other)
  Sender: FDA-Public Use
  Company Number: FR-BRISTOL-MYERS SQUIBB COMPANY-BMS-2015-041173

PATIENT
  Age: 83 Year
  Sex: Female

DRUGS (2)
  1. COUMADINE [Suspect]
     Active Substance: WARFARIN SODIUM
     Indication: PRODUCT USED FOR UNKNOWN INDICATION
     Dosage: 4 MG, QD
     Route: 042
     Dates: start: 201504, end: 20150410
  2. LOVENOX [Suspect]
     Active Substance: ENOXAPARIN SODIUM
     Indication: PRODUCT USED FOR UNKNOWN INDICATION
     Dosage: 8 ML, BID
     Route: 042
     Dates: start: 20150403, end: 20150410

REACTIONS (3)
  - Renal tubular necrosis [Unknown]
  - Shock haemorrhagic [Recovered/Resolved]
  - Pelvic haemorrhage [Recovered/Resolved]

NARRATIVE: CASE EVENT DATE: 20150410
